FAERS Safety Report 17065374 (Version 3)
Quarter: 2020Q1

REPORT INFORMATION
  Report Type: Report from Study
  Country: BE (occurrence: BE)
  Receive Date: 20191122
  Receipt Date: 20200212
  Transmission Date: 20200409
  Serious: Yes (Other)
  Sender: FDA-Public Use
  Company Number: BE-MYLANLABS-2019M1081787

PATIENT
  Age: 67 Year
  Sex: Female
  Weight: 78 kg

DRUGS (11)
  1. REDOMEX [Suspect]
     Active Substance: AMITRIPTYLINE HYDROCHLORIDE
     Indication: COLORECTAL CANCER
     Dosage: UNK
     Route: 065
  2. 5-FU                               /00098801/ [Suspect]
     Active Substance: FLUOROURACIL
     Indication: COLORECTAL CANCER METASTATIC
     Dosage: 1 DOSAGE FORM, BIWEEKLY
     Route: 065
     Dates: start: 20190122
  3. LEUCOVORIN                         /00566701/ [Suspect]
     Active Substance: LEUCOVORIN
     Indication: COLORECTAL CANCER METASTATIC
     Dosage: 1 DOSAGE FORM, BIWEEKLY
     Route: 065
     Dates: start: 20190122
  4. EUTHYROX [Concomitant]
     Active Substance: LEVOTHYROXINE SODIUM
     Dosage: UNK
     Route: 065
  5. PRIMPERAN [Concomitant]
     Active Substance: METOCLOPRAMIDE HYDROCHLORIDE
     Dosage: UNK
     Route: 065
  6. AMLODIPINE [Suspect]
     Active Substance: AMLODIPINE BESYLATE
     Indication: COLORECTAL CANCER
     Dosage: UNK
     Route: 065
  7. BEVACIZUMAB. [Suspect]
     Active Substance: BEVACIZUMAB
     Indication: COLORECTAL CANCER METASTATIC
     Dosage: 1 DOSAGE FORM, BIWEEKLY
     Route: 065
     Dates: start: 20190122
  8. MAGNESIUM [Concomitant]
     Active Substance: MAGNESIUM
     Dosage: UNK
     Route: 065
  9. BISOPROLOL [Concomitant]
     Active Substance: BISOPROLOL
     Dosage: UNK
     Route: 065
  10. OMEPRAZOLE. [Concomitant]
     Active Substance: OMEPRAZOLE
     Dosage: UNK
     Route: 065
  11. IRINOTECAN [Suspect]
     Active Substance: IRINOTECAN
     Indication: COLORECTAL CANCER METASTATIC
     Dosage: 1 DOSAGE FORM, BIWEEKLY
     Route: 065
     Dates: start: 20190122

REACTIONS (7)
  - Neuropathy peripheral [Not Recovered/Not Resolved]
  - Mouth ulceration [Recovered/Resolved]
  - Oedema [Not Recovered/Not Resolved]
  - Pulpitis dental [Recovered/Resolved]
  - Venous thrombosis limb [Recovered/Resolved]
  - Fatigue [Not Recovered/Not Resolved]
  - Malaise [Not Recovered/Not Resolved]

NARRATIVE: CASE EVENT DATE: 20190225
